FAERS Safety Report 16115103 (Version 1)
Quarter: 2019Q1

REPORT INFORMATION
  Report Type: Spontaneous
  Country: US (occurrence: US)
  Receive Date: 20190325
  Receipt Date: 20190325
  Transmission Date: 20190418
  Serious: No
  Sender: FDA-Public Use
  Company Number: US-SMITH AND NEPHEW, INC-2018SMT00106

PATIENT
  Age: 83 Year
  Sex: Male
  Weight: 66.67 kg

DRUGS (10)
  1. COLLAGENASE SANTYL [Suspect]
     Active Substance: COLLAGENASE CLOSTRIDIUM HISTOLYTICUM
     Indication: WOUND
     Dosage: 3 MM
     Route: 061
     Dates: start: 20180518
  2. GLIPIZIDE. [Concomitant]
     Active Substance: GLIPIZIDE
     Dosage: 10 MG
  3. METFORMIN [Concomitant]
     Active Substance: METFORMIN HYDROCHLORIDE
     Dosage: 1000 MG
  4. MULTIVITAMIN [Concomitant]
     Active Substance: VITAMINS
  5. TYLENOL [Concomitant]
     Active Substance: ACETAMINOPHEN
  6. LISINOPRIL. [Concomitant]
     Active Substance: LISINOPRIL
  7. TRAMADOL. [Concomitant]
     Active Substance: TRAMADOL
  8. ASPIRIN. [Concomitant]
     Active Substance: ASPIRIN
     Dosage: 81 MG
  9. JUVEN POWDER [Concomitant]
     Dates: start: 20180611
  10. LANTUS [Concomitant]
     Active Substance: INSULIN GLARGINE
     Dosage: 32 U

REACTIONS (4)
  - Dizziness [Unknown]
  - Application site pain [Recovered/Resolved]
  - Blood glucose decreased [Unknown]
  - Infection [Unknown]

NARRATIVE: CASE EVENT DATE: 2018
